FAERS Safety Report 11056239 (Version 2)
Quarter: 2015Q2

REPORT INFORMATION
  Report Type: Spontaneous
  Country: CH (occurrence: CH)
  Receive Date: 20150422
  Receipt Date: 20150504
  Transmission Date: 20150821
  Serious: Yes (Hospitalization, Other)
  Sender: FDA-Public Use
  Company Number: CH-ASTRAZENECA-2015SE35230

PATIENT
  Age: 79 Year
  Sex: Female
  Weight: 80 kg

DRUGS (13)
  1. DILTIAZEM [Suspect]
     Active Substance: DILTIAZEM
     Indication: ATRIAL FIBRILLATION
     Route: 048
     Dates: start: 20150328, end: 20150331
  2. RESONIUM [Suspect]
     Active Substance: SODIUM POLYSTYRENE SULFONATE
     Indication: HYPERKALAEMIA
     Route: 048
     Dates: start: 20150328, end: 20150331
  3. FOLIC ACID. [Suspect]
     Active Substance: FOLIC ACID
     Indication: FOLATE DEFICIENCY
     Route: 048
     Dates: start: 20150327
  4. REMERON [Concomitant]
     Active Substance: MIRTAZAPINE
     Indication: DEMENTIA
     Route: 048
  5. RISPERDAL [Concomitant]
     Active Substance: RISPERIDONE
     Indication: DEMENTIA
     Route: 048
  6. VITARUBIN [Suspect]
     Active Substance: CYANOCOBALAMIN
     Indication: VITAMIN B12 DECREASED
     Route: 058
     Dates: start: 20150328, end: 20150331
  7. DAFALGAN [Suspect]
     Active Substance: ACETAMINOPHEN
     Indication: PAIN
     Route: 048
     Dates: start: 20150331
  8. CALCIUM SANDOZ + WITAMIN D3 [Concomitant]
     Indication: OSTEOPOROSIS
     Route: 048
  9. DISTRANEURIN [Concomitant]
     Active Substance: CLOMETHIAZOLE
     Indication: DEMENTIA
     Route: 048
  10. NEXIUM [Suspect]
     Active Substance: ESOMEPRAZOLE MAGNESIUM
     Indication: GASTRODUODENAL HAEMORRHAGE
     Route: 041
     Dates: start: 20150326
  11. DILTIAZEM [Suspect]
     Active Substance: DILTIAZEM
     Indication: TACHYCARDIA
     Route: 048
     Dates: start: 20150328, end: 20150331
  12. FERINJECT [Suspect]
     Active Substance: FERRIC CARBOXYMALTOSE
     Indication: IRON DEFICIENCY ANAEMIA
     Route: 041
     Dates: start: 20150330, end: 20150402
  13. CEFTRIAXONE. [Concomitant]
     Active Substance: CEFTRIAXONE
     Indication: BACTERIAL INFECTION
     Route: 041
     Dates: start: 20150331

REACTIONS (8)
  - Leukocytosis [Not Recovered/Not Resolved]
  - Atrial fibrillation [Unknown]
  - Escherichia urinary tract infection [Unknown]
  - Tachycardia [Unknown]
  - Acute generalised exanthematous pustulosis [Recovering/Resolving]
  - Pyrexia [Not Recovered/Not Resolved]
  - Staphylococcal bacteraemia [Unknown]
  - Malaise [Recovering/Resolving]

NARRATIVE: CASE EVENT DATE: 20150328
